FAERS Safety Report 22361198 (Version 1)
Quarter: 2023Q2

REPORT INFORMATION
  Report Type: Other
  Country: KR (occurrence: None)
  Receive Date: 20230524
  Receipt Date: 20230524
  Transmission Date: 20230721
  Serious: Yes (Other)
  Sender: FDA-Public Use
  Company Number: KR-ROCHE-3354231

PATIENT
  Age: 44 Year
  Sex: Male

DRUGS (8)
  1. TECENTRIQ [Suspect]
     Active Substance: ATEZOLIZUMAB
     Indication: Hepatocellular carcinoma
     Route: 041
  2. AVASTIN [Suspect]
     Active Substance: BEVACIZUMAB
     Indication: Hepatocellular carcinoma
     Route: 065
  3. SORAFENIB [Concomitant]
     Active Substance: SORAFENIB
     Route: 048
  4. REGORAFENIB [Concomitant]
     Active Substance: REGORAFENIB
     Dosage: FOR 3 WEEKS ON AND 1 WEEK OFF.
     Route: 048
  5. NIVOLUMAB [Concomitant]
     Active Substance: NIVOLUMAB
  6. NIVOLUMAB [Concomitant]
     Active Substance: NIVOLUMAB
  7. IPILIMUMAB [Concomitant]
     Active Substance: IPILIMUMAB
  8. ENTECAVIR [Concomitant]
     Active Substance: ENTECAVIR

REACTIONS (3)
  - Metastases to lung [Recovered/Resolved]
  - Disease progression [Recovered/Resolved]
  - Drug ineffective [Unknown]
